FAERS Safety Report 23512702 (Version 1)
Quarter: 2024Q1

REPORT INFORMATION
  Report Type: Spontaneous
  Country: US (occurrence: US)
  Receive Date: 20240212
  Receipt Date: 20240212
  Transmission Date: 20240410
  Serious: Yes (Other)
  Sender: FDA-Public Use
  Company Number: US-AQUESTIVE THERAPEUTICS, INC-2022AQU00113

PATIENT
  Age: 34 Year
  Sex: Female

DRUGS (2)
  1. SYMPAZAN [Suspect]
     Active Substance: CLOBAZAM
     Dosage: 5 MG, 2X/DAY ON TOP OF THE TONGUE
     Route: 048
     Dates: end: 202211
  2. SYMPAZAN [Suspect]
     Active Substance: CLOBAZAM
     Dosage: 5 MG, 1X/DAY ON TOP OF THE TONGUE
     Route: 048
     Dates: start: 202211

REACTIONS (1)
  - Seizure [Unknown]

NARRATIVE: CASE EVENT DATE: 20221101
